FAERS Safety Report 26025778 (Version 1)
Quarter: 2025Q4

REPORT INFORMATION
  Report Type: Spontaneous
  Country: CN (occurrence: CN)
  Receive Date: 20251111
  Receipt Date: 20251111
  Transmission Date: 20260118
  Serious: Yes (Other)
  Sender: ORGANON
  Company Number: CN-ORGANON-O2511CHN000544

PATIENT
  Age: 72 Year
  Sex: Female

DRUGS (3)
  1. FOSAMAX [Suspect]
     Active Substance: ALENDRONATE SODIUM
     Dosage: UNK
  2. CALTRATE [Suspect]
     Active Substance: CALCIUM CARBONATE
     Dosage: UNK
  3. CALCITRIOL [Suspect]
     Active Substance: CALCITRIOL
     Dosage: UNK

REACTIONS (1)
  - Toothache [Unknown]
